FAERS Safety Report 14115453 (Version 2)
Quarter: 2019Q3

REPORT INFORMATION
  Report Type: Spontaneous
  Country: LB (occurrence: LB)
  Receive Date: 20171023
  Receipt Date: 20190729
  Transmission Date: 20191004
  Serious: Yes (Other)
  Sender: FDA-Public Use
  Company Number: LB-ASTELLAS-2017US041943

PATIENT
  Age: 41 Year
  Sex: Male

DRUGS (3)
  1. CELLCEPT [Suspect]
     Active Substance: MYCOPHENOLATE MOFETIL\MYCOPHENOLATE MOFETIL HYDROCHLORIDE
     Indication: RENAL TRANSPLANT
     Dosage: UNK UNK, UNKNOWN FREQ.
     Route: 065
  2. ATG-FRESENIUS [Suspect]
     Active Substance: LAPINE T-LYMPHOCYTE IMMUNE GLOBULIN
     Indication: RENAL TRANSPLANT
     Dosage: UNK UNK, UNKNOWN FREQ.
     Route: 065
  3. PROGRAF [Suspect]
     Active Substance: TACROLIMUS\TACROLIMUS ANHYDROUS
     Indication: RENAL TRANSPLANT
     Dosage: UNK UNK, UNKNOWN FREQ.
     Route: 065

REACTIONS (10)
  - Lymphopenia [Recovering/Resolving]
  - Thrombotic microangiopathy [Unknown]
  - Leukopenia [Unknown]
  - Drug level above therapeutic [Unknown]
  - Complications of transplanted kidney [Recovered/Resolved]
  - Renal tubular necrosis [Recovering/Resolving]
  - Adenovirus infection [Recovered/Resolved]
  - Klebsiella infection [Unknown]
  - Tubulointerstitial nephritis [Recovering/Resolving]
  - Cystitis haemorrhagic [Recovering/Resolving]
